FAERS Safety Report 6734529-8 (Version None)
Quarter: 2010Q2

REPORT INFORMATION
  Report Type: 
  Country: None (occurrence: None)
  Receive Date: 20100520
  Receipt Date: 20100507
  Transmission Date: 20101027
  Serious: Yes (Other)
  Sender: FDA-Public Use
  Company Number: US-ELI_LILLY_AND_COMPANY-US201005002904

PATIENT
  Sex: Female

DRUGS (7)
  1. FORTEO [Suspect]
     Indication: OSTEOPOROSIS
     Dosage: 20 UG, DAILY (1/D)
  2. HYDROCODONE [Concomitant]
  3. DIOVAN [Concomitant]
     Dosage: 320 MG, UNK
  4. FUROSEMIDE [Concomitant]
  5. PANTOPRAZOLE [Concomitant]
  6. LOPRESSOR [Concomitant]
  7. CLONAZEPAM [Concomitant]
     Dates: start: 20090101

REACTIONS (10)
  - BODY HEIGHT DECREASED [None]
  - FOREIGN BODY REACTION [None]
  - GAIT DISTURBANCE [None]
  - HIP FRACTURE [None]
  - INSOMNIA [None]
  - INTENTIONAL DRUG MISUSE [None]
  - OEDEMA PERIPHERAL [None]
  - PAIN IN EXTREMITY [None]
  - SKIN DISCOLOURATION [None]
  - UNEQUAL LIMB LENGTH [None]
